FAERS Safety Report 8069396-6 (Version None)
Quarter: 2012Q1

REPORT INFORMATION
  Report Type: 
  Country: None (occurrence: None)
  Receive Date: 20120119
  Receipt Date: 20120104
  Transmission Date: 20120608
  Serious: Yes (Hospitalization, Other)
  Sender: FDA-Public Use
  Company Number: JPI-P-003822

PATIENT
  Age: 45 Year
  Sex: Male
  Weight: 95.2554 kg

DRUGS (11)
  1. XYREM [Suspect]
     Indication: CATAPLEXY
     Dosage: UNKNOWN, 2 IN 1 D, ORAL, 9 GM (4.5 GM, 2 IN 1 D), ORAL, 3 GM (3 GM, 1 IN 1 D), ORAL, 4.5 GM (4.5 GM
     Route: 048
     Dates: start: 20080523, end: 20080523
  2. XYREM [Suspect]
     Indication: CATAPLEXY
     Dosage: UNKNOWN, 2 IN 1 D, ORAL, 9 GM (4.5 GM, 2 IN 1 D), ORAL, 3 GM (3 GM, 1 IN 1 D), ORAL, 4.5 GM (4.5 GM
     Route: 048
     Dates: end: 20080522
  3. XYREM [Suspect]
     Indication: CATAPLEXY
     Dosage: UNKNOWN, 2 IN 1 D, ORAL, 9 GM (4.5 GM, 2 IN 1 D), ORAL, 3 GM (3 GM, 1 IN 1 D), ORAL, 4.5 GM (4.5 GM
     Route: 048
     Dates: start: 20080501, end: 20080501
  4. XYREM [Suspect]
     Indication: CATAPLEXY
     Dosage: UNKNOWN, 2 IN 1 D, ORAL, 9 GM (4.5 GM, 2 IN 1 D), ORAL, 3 GM (3 GM, 1 IN 1 D), ORAL, 4.5 GM (4.5 GM
     Route: 048
     Dates: start: 20080527
  5. XYREM [Suspect]
     Indication: CATAPLEXY
     Dosage: UNKNOWN, 2 IN 1 D, ORAL, 9 GM (4.5 GM, 2 IN 1 D), ORAL, 3 GM (3 GM, 1 IN 1 D), ORAL, 4.5 GM (4.5 GM
     Route: 048
     Dates: start: 20060201
  6. TRAZODONE HCL [Suspect]
     Indication: MIDDLE INSOMNIA
     Dosage: UNKNOWN
  7. LAMOTRIGINE [Concomitant]
  8. OMEPRAZOLE [Concomitant]
  9. ARMODAFINIL [Concomitant]
  10. ZOLPIDEM TARTRATE [Suspect]
     Indication: MIDDLE INSOMNIA
     Dosage: UNKNOWN
     Dates: start: 20090101
  11. FLUOXETINE HYDROCHLORIDE [Concomitant]

REACTIONS (13)
  - DRUG TOLERANCE [None]
  - DEPRESSION [None]
  - ABNORMAL BEHAVIOUR [None]
  - CATAPLEXY [None]
  - CONTRAINDICATION TO MEDICAL TREATMENT [None]
  - INTENTIONAL OVERDOSE [None]
  - CONDITION AGGRAVATED [None]
  - SLEEP-RELATED EATING DISORDER [None]
  - BIPOLAR DISORDER [None]
  - UNRESPONSIVE TO STIMULI [None]
  - SOMNAMBULISM [None]
  - INSOMNIA [None]
  - SUICIDE ATTEMPT [None]
